FAERS Safety Report 6157178-1 (Version None)
Quarter: 2009Q2

REPORT INFORMATION
  Report Type: 
  Country: None (occurrence: None)
  Receive Date: 20090416
  Receipt Date: 20090403
  Transmission Date: 20091009
  Serious: Yes (Hospitalization)
  Sender: FDA-Public Use
  Company Number: JP-GENENTECH-274905

PATIENT
  Sex: Female

DRUGS (13)
  1. AVASTIN [Suspect]
     Indication: COLON CANCER METASTATIC
     Dosage: 5 MG/KG, QD
     Route: 041
     Dates: start: 20080806, end: 20080818
  2. AVASTIN [Suspect]
     Dosage: UNK
     Dates: start: 20080902, end: 20080930
  3. ELPLAT [Suspect]
     Indication: COLON CANCER METASTATIC
     Dosage: 127 MG, QD
     Route: 041
     Dates: start: 20080806, end: 20080818
  4. ELPLAT [Suspect]
     Dosage: UNK
     Dates: start: 20080902, end: 20080916
  5. ELPLAT [Suspect]
     Dosage: UNK
     Dates: start: 20080930
  6. FLUOROURACIL [Suspect]
     Indication: COLON CANCER METASTATIC
     Dosage: 600 MG, QD
     Route: 041
     Dates: start: 20080806, end: 20080818
  7. FLUOROURACIL [Suspect]
     Dosage: UNK
     Dates: start: 20080902, end: 20080916
  8. FLUOROURACIL [Suspect]
     Dosage: UNK
     Dates: start: 20080930
  9. ISOVORIN [Suspect]
     Indication: COLON CANCER METASTATIC
     Dosage: 300 MG, QD
     Route: 041
     Dates: start: 20080806, end: 20080818
  10. ISOVORIN [Suspect]
     Dosage: UNK
     Dates: start: 20080902, end: 20080916
  11. ISOVORIN [Suspect]
     Dosage: UNK
     Dates: start: 20080930
  12. LENDORMIN [Suspect]
     Indication: INSOMNIA
     Dosage: 0.25 MG, QD
     Route: 048
     Dates: start: 20080811, end: 20080818
  13. LENDORMIN [Suspect]
     Dosage: UNK
     Dates: start: 20080930

REACTIONS (1)
  - HEPATIC ENZYME INCREASED [None]
